FAERS Safety Report 8703145 (Version 2)
Quarter: 2013Q1

REPORT INFORMATION
  Report Type: Spontaneous
  Country: DK (occurrence: None)
  Receive Date: 20120719
  Receipt Date: 20121119
  Transmission Date: 20140127
  Serious: Yes (Hospitalization)
  Sender: FDA-Public Use
  Company Number: 2012MA008693

PATIENT
  Age: 51 Year
  Sex: Male

DRUGS (4)
  1. MIRTAZAPINE [Suspect]
     Dosage: 30 MG, PO
     Route: 048
  2. SIMVASTATIN [Concomitant]
  3. METFORMIN HYDROCHLORIDE [Concomitant]
  4. GLIMEPIRIDE [Concomitant]

REACTIONS (5)
  - CONFUSIONAL STATE [None]
  - AGITATION [None]
  - CONVULSION [None]
  - ENCEPHALITIS [None]
  - NEUROLEPTIC MALIGNANT SYNDROME [None]
